FAERS Safety Report 7149154-7 (Version None)
Quarter: 2010Q4

REPORT INFORMATION
  Report Type: 
  Country: None (occurrence: None)
  Receive Date: 20101126
  Receipt Date: 20101110
  Transmission Date: 20110411
  Serious: Yes (Other)
  Sender: FDA-Public Use
  Company Number: 021795

PATIENT
  Sex: Female

DRUGS (1)
  1. CIMZIA [Suspect]
     Indication: OFF LABEL USE
     Dosage: (SUBCUTANEOUS)
     Route: 058
     Dates: start: 20100505

REACTIONS (3)
  - HYPERSOMNIA [None]
  - PRECANCEROUS CELLS PRESENT [None]
  - PRURITUS GENERALISED [None]
